FAERS Safety Report 8474730-9 (Version None)
Quarter: 2012Q2

REPORT INFORMATION
  Report Type: 
  Country: None (occurrence: None)
  Receive Date: 20120621
  Receipt Date: 20120615
  Transmission Date: 20120825
  Serious: Yes (Hospitalization)
  Sender: FDA-Public Use
  Company Number: AUR-APL-2012-02666

PATIENT
  Age: 69 Year
  Sex: Female
  Weight: 63.5 kg

DRUGS (15)
  1. GLICLAZIDE (GLICLAZIDE) [Concomitant]
  2. SIMVASTATIN [Concomitant]
  3. TRAMADOL HCL [Concomitant]
  4. TRIMETHOPRIM [Concomitant]
  5. ALENDRONIC ACID(ALENDRONIC ACID) [Concomitant]
  6. GABAPENTIN [Concomitant]
  7. AMITRIPTYLINE HCL [Concomitant]
  8. DIAZEPAM [Concomitant]
  9. EPLERENONE [Concomitant]
  10. ESOMEPRAZOLE MAGNESIUM [Concomitant]
  11. CARVEDILOL [Concomitant]
  12. ADCAL-D3(LEKOVIT CA) [Concomitant]
  13. ASPIRIN [Concomitant]
  14. AMOXICILLIN [Suspect]
     Indication: INFECTION
     Dosage: 500 MG),ORAL
     Route: 048
     Dates: start: 20120529, end: 20120605
  15. AMOXICILLIN [Suspect]
     Indication: DECUBITUS ULCER
     Dosage: 500 MG),ORAL
     Route: 048
     Dates: start: 20120529, end: 20120605

REACTIONS (1)
  - LIVER FUNCTION TEST ABNORMAL [None]
